FAERS Safety Report 4754649-7 (Version None)
Quarter: 2005Q3

REPORT INFORMATION
  Report Type: 
  Country: None (occurrence: None)
  Receive Date: 20050829
  Receipt Date: 20050414
  Transmission Date: 20060218
  Serious: Yes (Death)
  Sender: FDA-Public Use
  Company Number: US-MERCK-0504USA02986

PATIENT
  Age: 63 Year
  Sex: Female
  Weight: 76 kg

DRUGS (12)
  1. VIOXX [Suspect]
     Indication: CERVICOBRACHIAL SYNDROME
     Route: 048
     Dates: start: 20010701
  2. VIOXX [Suspect]
     Route: 048
  3. VIOXX [Suspect]
     Indication: SPINAL OSTEOARTHRITIS
     Route: 048
  4. NEURONTIN [Concomitant]
     Route: 048
  5. ULTRAM [Concomitant]
     Route: 048
  6. AMITRIPTYLINE HYDROCHLORIDE [Concomitant]
     Route: 048
  7. PEPCID [Concomitant]
     Route: 048
     Dates: start: 20040101
  8. ESTRADIOL [Concomitant]
     Route: 065
     Dates: start: 20040101
  9. VICODIN [Concomitant]
     Route: 048
     Dates: start: 20040101
  10. LIPITOR [Concomitant]
     Route: 065
  11. OXYCONTIN [Concomitant]
     Indication: PAIN MANAGEMENT
     Route: 065
     Dates: start: 20020724
  12. VIOXX [Suspect]
     Route: 048
     Dates: start: 20010701

REACTIONS (4)
  - ADVERSE EVENT [None]
  - CHEST PAIN [None]
  - DEATH [None]
  - PAIN IN EXTREMITY [None]
